FAERS Safety Report 6925900-X (Version None)
Quarter: 2010Q3

REPORT INFORMATION
  Report Type: 
  Country: None (occurrence: None)
  Receive Date: 20100816
  Receipt Date: 20100802
  Transmission Date: 20110219
  Serious: Yes (Hospitalization)
  Sender: FDA-Public Use
  Company Number: PHHY2010US51018

PATIENT
  Sex: Male

DRUGS (8)
  1. TEKTURNA [Suspect]
     Dosage: 300 MG
  2. METOPROLOL TARTRATE [Concomitant]
     Dosage: 100 MG TWICE A DAY
  3. BENICAR [Concomitant]
     Dosage: 40 MG
  4. SIMVASTATIN [Concomitant]
     Dosage: 40 MG
  5. WARFARIN [Concomitant]
     Dosage: 4 MG
  6. FISH OIL [Concomitant]
     Dosage: 1000MG
  7. VITAMIN D3 [Concomitant]
     Dosage: 1000IU
  8. MULTI-VITAMINS [Concomitant]

REACTIONS (2)
  - GENERAL PHYSICAL HEALTH DETERIORATION [None]
  - MEMORY IMPAIRMENT [None]
